FAERS Safety Report 6449238-2 (Version None)
Quarter: 2009Q4

REPORT INFORMATION
  Report Type: 
  Country: None (occurrence: None)
  Receive Date: 20091120
  Receipt Date: 20091110
  Transmission Date: 20100525
  Serious: Yes (Other)
  Sender: FDA-Public Use
  Company Number: JP-BRISTOL-MYERS SQUIBB COMPANY-14856843

PATIENT
  Age: 33 Year
  Sex: Female

DRUGS (3)
  1. BRIPLATIN [Suspect]
     Indication: OVARIAN CANCER
     Route: 041
  2. VINBLASTINE SULFATE [Suspect]
     Indication: OVARIAN CANCER
     Route: 042
  3. PEPLOMYCIN SULFATE [Suspect]
     Indication: OVARIAN CANCER
     Route: 042

REACTIONS (1)
  - TERATOMA [None]
